FAERS Safety Report 9787990 (Version 2)
Quarter: 2014Q1

REPORT INFORMATION
  Report Type: Spontaneous
  Country: US (occurrence: US)
  Receive Date: 20131230
  Receipt Date: 20140131
  Transmission Date: 20141002
  Serious: No
  Sender: FDA-Public Use
  Company Number: US-B.I. PHARMACEUTICALS,INC./RIDGEFIELD-2013-BI-42756BP

PATIENT
  Sex: Female
  Weight: 66 kg

DRUGS (1)
  1. SPIRIVA [Suspect]
     Indication: PULMONARY FIBROSIS
     Dosage: 18 MCG
     Route: 055
     Dates: start: 2009

REACTIONS (4)
  - Dyspnoea [Not Recovered/Not Resolved]
  - Off label use [Unknown]
  - Product quality issue [Not Recovered/Not Resolved]
  - Product quality issue [Not Recovered/Not Resolved]
